FAERS Safety Report 21442333 (Version 1)
Quarter: 2022Q4

REPORT INFORMATION
  Report Type: Spontaneous
  Country: US (occurrence: None)
  Receive Date: 20221010
  Receipt Date: 20221010
  Transmission Date: 20230113
  Serious: Yes (Hospitalization)
  Sender: FDA-Public Use
  Company Number: None

PATIENT
  Age: 36 Year
  Sex: Female
  Weight: 135 kg

DRUGS (1)
  1. WAKIX [Suspect]
     Active Substance: PITOLISANT HYDROCHLORIDE
     Indication: Narcolepsy
     Route: 048

REACTIONS (3)
  - Mania [None]
  - Psychotic disorder [None]
  - Bipolar disorder [None]

NARRATIVE: CASE EVENT DATE: 20220410
